FAERS Safety Report 7528657-7 (Version None)
Quarter: 2011Q2

REPORT INFORMATION
  Report Type: 
  Country: None (occurrence: None)
  Receive Date: 20110607
  Receipt Date: 20040921
  Transmission Date: 20111010
  Serious: Yes (Death, Hospitalization, Other)
  Sender: FDA-Public Use
  Company Number: PHHO2004CO02631

PATIENT
  Sex: Female

DRUGS (6)
  1. CLONAZEPAM [Concomitant]
  2. AKINETON [Concomitant]
     Indication: PARKINSON'S DISEASE
  3. DIOVAN [Suspect]
     Indication: HYPERTENSION
     Dosage: 40 MG, QD
     Route: 048
     Dates: start: 20030801
  4. ASPIRIN [Concomitant]
     Dosage: 100 MG, QD
     Route: 048
  5. NITRAZEPAM [Concomitant]
  6. ISOSORBIDE [Concomitant]

REACTIONS (8)
  - DEPRESSION [None]
  - CHOKING [None]
  - ANXIETY [None]
  - SYNCOPE [None]
  - SPEECH DISORDER [None]
  - HEMIPARESIS [None]
  - EATING DISORDER [None]
  - CEREBRAL ISCHAEMIA [None]
